FAERS Safety Report 6161696-X (Version None)
Quarter: 2009Q2

REPORT INFORMATION
  Report Type: 
  Country: None (occurrence: None)
  Receive Date: 20090417
  Receipt Date: 20090408
  Transmission Date: 20091009
  Serious: Yes (Other)
  Sender: FDA-Public Use
  Company Number: 2009AP001457

PATIENT
  Sex: Female

DRUGS (16)
  1. CIPROFLOXACIN [Suspect]
     Indication: NEPHROLITHIASIS
     Dosage: 500 MG; PRN; PO
     Route: 048
     Dates: start: 20050314
  2. CIPROFLOXACIN [Suspect]
     Indication: URINARY TRACT INFECTION
     Dosage: 500 MG; PRN; PO
     Route: 048
     Dates: start: 20050314
  3. CIPROFLOXACIN [Suspect]
     Indication: NEPHROLITHIASIS
     Dosage: 500 MG; PRN; PO
     Route: 048
     Dates: start: 20051201
  4. CIPROFLOXACIN [Suspect]
     Indication: URINARY TRACT INFECTION
     Dosage: 500 MG; PRN; PO
     Route: 048
     Dates: start: 20051201
  5. CIPROFLOXACIN [Suspect]
     Indication: NEPHROLITHIASIS
     Dosage: 500 MG; PRN; PO
     Route: 048
     Dates: start: 20060701
  6. CIPROFLOXACIN [Suspect]
     Indication: URINARY TRACT INFECTION
     Dosage: 500 MG; PRN; PO
     Route: 048
     Dates: start: 20060701
  7. CIPROFLOXACIN [Suspect]
     Indication: NEPHROLITHIASIS
     Dosage: 500 MG; PRN; PO
     Route: 048
     Dates: start: 20070201
  8. CIPROFLOXACIN [Suspect]
     Indication: URINARY TRACT INFECTION
     Dosage: 500 MG; PRN; PO
     Route: 048
     Dates: start: 20070201
  9. CIPROFLOXACIN [Suspect]
     Indication: NEPHROLITHIASIS
     Dosage: 500 MG; PRN; PO
     Route: 048
     Dates: start: 20070501
  10. CIPROFLOXACIN [Suspect]
     Indication: URINARY TRACT INFECTION
     Dosage: 500 MG; PRN; PO
     Route: 048
     Dates: start: 20070501
  11. CIPROFLOXACIN [Suspect]
     Indication: NEPHROLITHIASIS
     Dosage: 500 MG; PRN; PO
     Route: 048
     Dates: start: 20070901
  12. CIPROFLOXACIN [Suspect]
     Indication: URINARY TRACT INFECTION
     Dosage: 500 MG; PRN; PO
     Route: 048
     Dates: start: 20070901
  13. CIPROFLOXACIN [Suspect]
     Indication: NEPHROLITHIASIS
     Dosage: 500 MG; PRN; PO
     Route: 048
     Dates: start: 20080201
  14. CIPROFLOXACIN [Suspect]
     Indication: URINARY TRACT INFECTION
     Dosage: 500 MG; PRN; PO
     Route: 048
     Dates: start: 20080201
  15. CIPROFLOXACIN [Suspect]
     Indication: NEPHROLITHIASIS
     Dosage: 500 MG; PRN; PO
     Route: 048
     Dates: start: 20080501
  16. CIPROFLOXACIN [Suspect]
     Indication: URINARY TRACT INFECTION
     Dosage: 500 MG; PRN; PO
     Route: 048
     Dates: start: 20080501

REACTIONS (5)
  - ANKLE FRACTURE [None]
  - ARTHRALGIA [None]
  - LIGAMENT RUPTURE [None]
  - PAIN IN EXTREMITY [None]
  - TENDONITIS [None]
